FAERS Safety Report 9706559 (Version 3)
Quarter: 2014Q3

REPORT INFORMATION
  Report Type: Spontaneous
  Country: US (occurrence: US)
  Receive Date: 20131125
  Receipt Date: 20140924
  Transmission Date: 20150326
  Serious: Yes (Other)
  Sender: FDA-Public Use
  Company Number: US-TEVA-445922USA

PATIENT
  Age: 30 Year
  Sex: Female
  Weight: 74.46 kg

DRUGS (2)
  1. PARAGARD T380A [Suspect]
     Active Substance: COPPER
     Indication: CONTRACEPTION
     Route: 015
     Dates: start: 20080701, end: 20131119
  2. PARAGARD T380A [Suspect]
     Active Substance: COPPER
     Route: 015
     Dates: start: 20140828

REACTIONS (9)
  - Pregnancy on contraceptive [Recovered/Resolved]
  - Nausea [Unknown]
  - Headache [Unknown]
  - Exposure during pregnancy [Recovered/Resolved]
  - Dizziness [Unknown]
  - Delivery [Recovered/Resolved]
  - Uterine haemorrhage [Unknown]
  - Drug ineffective [Recovered/Resolved]
  - Fatigue [Unknown]

NARRATIVE: CASE EVENT DATE: 20131118
